FAERS Safety Report 22843889 (Version 7)
Quarter: 2023Q4

REPORT INFORMATION
  Report Type: Spontaneous
  Country: CH (occurrence: CH)
  Receive Date: 20230821
  Receipt Date: 20231005
  Transmission Date: 20240109
  Serious: Yes (Hospitalization, Other)
  Sender: FDA-Public Use
  Company Number: CH-MYLANLABS-2023M1085072

PATIENT
  Age: 86 Year
  Sex: Male

DRUGS (2)
  1. XANAX [Suspect]
     Active Substance: ALPRAZOLAM
     Indication: Fear
     Dosage: 0.25 MILLIGRAM, TID (2 TABS IN THE MORNING AND 1 TAB IN THE EVENING)
     Route: 065
     Dates: start: 20230713
  2. XANAX [Suspect]
     Active Substance: ALPRAZOLAM
     Indication: Anxiety
     Dosage: 1.2 MILLIGRAM, BID (IN THE MORNING AND IN THE EVENING)
     Route: 065

REACTIONS (11)
  - Cerebral disorder [Unknown]
  - Insomnia [Unknown]
  - Somnolence [Unknown]
  - Irritable bowel syndrome [Not Recovered/Not Resolved]
  - Pain in extremity [Not Recovered/Not Resolved]
  - Condition aggravated [Not Recovered/Not Resolved]
  - Malaise [Unknown]
  - Anxiety [Unknown]
  - Depression [Unknown]
  - Intentional underdose [Unknown]
  - Intentional dose omission [Unknown]
